FAERS Safety Report 16796845 (Version 5)
Quarter: 2022Q1

REPORT INFORMATION
  Report Type: Spontaneous
  Country: US (occurrence: US)
  Receive Date: 20190911
  Receipt Date: 20220207
  Transmission Date: 20220423
  Serious: Yes (Hospitalization, Other)
  Sender: FDA-Public Use
  Company Number: US-BIOCODEX2-201901151

PATIENT

DRUGS (7)
  1. DIACOMIT [Suspect]
     Active Substance: STIRIPENTOL
     Indication: Severe myoclonic epilepsy of infancy
     Dosage: ONE CAPSULE THREE TIMES DAILY
     Route: 048
     Dates: start: 20190703
  2. DIACOMIT [Suspect]
     Active Substance: STIRIPENTOL
     Dosage: ONE CAPSULE IN AM AND PM
     Route: 048
  3. DIACOMIT [Suspect]
     Active Substance: STIRIPENTOL
     Dosage: TWO CAPSULES OF 250MG BY MOUTH IN THE MORNING AND ONE CAPSULE OF 250MG AT MID-DAY
     Route: 048
  4. DIACOMIT [Suspect]
     Active Substance: STIRIPENTOL
     Dosage: 250MG FOUR TIMES A DAY.
     Route: 065
  5. DIACOMIT [Suspect]
     Active Substance: STIRIPENTOL
     Dosage: 250MG CAPSULES: TWO IN THE MORNING, 1 AT LUNCHTIME AND 2 IN THE EVENING.
     Route: 065
  6. ONFI [Concomitant]
     Active Substance: CLOBAZAM
     Indication: Severe myoclonic epilepsy of infancy
     Route: 065
  7. DEPAKENE [Concomitant]
     Active Substance: VALPROIC ACID
     Indication: Product used for unknown indication
     Route: 065

REACTIONS (2)
  - Dehydration [Unknown]
  - Pneumonia [Unknown]
